FAERS Safety Report 9377628 (Version 1)
Quarter: 2013Q3

REPORT INFORMATION
  Report Type: Spontaneous
  Country: CN (occurrence: CN)
  Receive Date: 20130701
  Receipt Date: 20130701
  Transmission Date: 20140515
  Serious: Yes (Life-Threatening, Hospitalization)
  Sender: FDA-Public Use
  Company Number: CN-ASTRAZENECA-2013SE49413

PATIENT
  Age: 72 Year
  Sex: Male

DRUGS (1)
  1. QUETIAPINE [Suspect]
     Indication: ANXIETY DISORDER
     Dosage: 50 TABLETS
     Route: 048

REACTIONS (2)
  - Toxicity to various agents [Recovered/Resolved]
  - Coma [Recovered/Resolved]
